FAERS Safety Report 18647160 (Version 1)
Quarter: 2020Q4

REPORT INFORMATION
  Report Type: Spontaneous
  Country: JO (occurrence: JO)
  Receive Date: 20201222
  Receipt Date: 20201222
  Transmission Date: 20210114
  Serious: Yes (Hospitalization, Other)
  Sender: FDA-Public Use
  Company Number: JO-LUPIN PHARMACEUTICALS INC.-2020-10455

PATIENT
  Age: 42 Year
  Sex: Male
  Weight: 115 kg

DRUGS (7)
  1. FENOFIBRATE TABLETS [Suspect]
     Active Substance: FENOFIBRATE
     Indication: LIPIDS INCREASED
     Dosage: 100 MILLIGRAM, QD (IN MORNING)
     Route: 048
  2. SIMVASTATIN. [Suspect]
     Active Substance: SIMVASTATIN
     Indication: BLOOD CHOLESTEROL INCREASED
  3. SIMVASTATIN. [Suspect]
     Active Substance: SIMVASTATIN
     Indication: BLOOD TRIGLYCERIDES INCREASED
     Dosage: 20 MILLIGRAM, QD (AT NIGHT)
     Route: 048
  4. SIMVASTATIN. [Suspect]
     Active Substance: SIMVASTATIN
     Indication: LIPIDS INCREASED
  5. FENOFIBRATE TABLETS [Suspect]
     Active Substance: FENOFIBRATE
     Indication: BLOOD CHOLESTEROL INCREASED
  6. FENOFIBRATE TABLETS [Suspect]
     Active Substance: FENOFIBRATE
     Indication: BLOOD TRIGLYCERIDES INCREASED
     Dosage: 200 MILLIGRAM, QD (IN MORNING)
     Route: 048
  7. OLMESARTAN MEDOXOMIL, AMLODIPINE AND HYDROCHLOROTHIAZIDE [Concomitant]
     Active Substance: AMLODIPINE\HYDROCHLOROTHIAZIDE\OLMESARTAN
     Indication: HYPERTENSION
     Dosage: 5 MILLIGRAM, QD (AT MORNING)
     Route: 048

REACTIONS (2)
  - Food craving [Recovered/Resolved]
  - Hypertension [Recovered/Resolved]
